FAERS Safety Report 16127926 (Version 1)
Quarter: 2019Q1

REPORT INFORMATION
  Report Type: Spontaneous
  Country: FR (occurrence: FR)
  Receive Date: 20190328
  Receipt Date: 20190328
  Transmission Date: 20190418
  Serious: Yes (Other)
  Sender: FDA-Public Use
  Company Number: FR-GLAXOSMITHKLINE-FR2019052489

PATIENT
  Age: 44 Year
  Sex: Male

DRUGS (4)
  1. IBUPROFENE [Suspect]
     Active Substance: IBUPROFEN
     Indication: ARTHRALGIA
     Dosage: IN TOTAL
     Route: 061
     Dates: start: 2016, end: 2016
  2. RHINOCORT [Concomitant]
     Active Substance: BUDESONIDE
     Indication: RHINITIS ALLERGIC
     Dosage: UNK
     Route: 045
  3. KETUM [Suspect]
     Active Substance: KETOPROFEN
     Indication: ARTHRALGIA
     Dosage: IN TOTAL
     Route: 048
     Dates: start: 2016, end: 2016
  4. VOLTARENE (DICLOFENAC SODIUM) [Suspect]
     Active Substance: DICLOFENAC SODIUM
     Indication: ARTHRALGIA
     Dosage: UNK
     Route: 048
     Dates: start: 2016, end: 2016

REACTIONS (2)
  - Angioedema [Recovered/Resolved]
  - Rash generalised [Recovered/Resolved]

NARRATIVE: CASE EVENT DATE: 2016
